FAERS Safety Report 21545202 (Version 1)
Quarter: 2022Q4

REPORT INFORMATION
  Report Type: Spontaneous
  Country: US (occurrence: US)
  Receive Date: 20221103
  Receipt Date: 20221103
  Transmission Date: 20230113
  Serious: Yes (Hospitalization)
  Sender: FDA-Public Use
  Company Number: US-BIOVITRUM-2022US12476

PATIENT
  Sex: Female
  Weight: 5 kg

DRUGS (3)
  1. SYNAGIS [Suspect]
     Active Substance: PALIVIZUMAB
     Indication: Premature baby
     Dosage: 100 MG SDV/INJ PF 1 ML 1^S
  2. SYNAGIS [Suspect]
     Active Substance: PALIVIZUMAB
     Indication: Developmental delay
  3. SYNAGIS [Suspect]
     Active Substance: PALIVIZUMAB
     Indication: Apnoea

REACTIONS (1)
  - Human metapneumovirus test positive [Unknown]
